FAERS Safety Report 12965336 (Version 2)
Quarter: 2016Q4

REPORT INFORMATION
  Report Type: Spontaneous
  Country: US (occurrence: US)
  Receive Date: 20161122
  Receipt Date: 20161219
  Transmission Date: 20170207
  Serious: Yes (Hospitalization, Other)
  Sender: FDA-Public Use
  Company Number: US-SMITH AND NEPHEW, INC-2016SMT01022

PATIENT
  Age: 84 Year
  Sex: Female
  Weight: 58.96 kg

DRUGS (5)
  1. ELIQUIS [Concomitant]
     Active Substance: APIXABAN
  2. UNSPECIFIED HEART FAILURE MEDICATIONS [Concomitant]
  3. UNSPECIFIED ACE INHIBITOR [Concomitant]
  4. UNSPECIFIED DIURETIC MEDICATION [Concomitant]
  5. REGRANEX [Suspect]
     Active Substance: BECAPLERMIN
     Indication: ULCER
     Dosage: UNK UNK, 1X/DAY
     Route: 061
     Dates: start: 20161003

REACTIONS (9)
  - Oedema [Recovered/Resolved]
  - Fall [Recovering/Resolving]
  - Acute kidney injury [Recovering/Resolving]
  - Troponin increased [Recovering/Resolving]
  - Head injury [Recovering/Resolving]
  - Orthostatic hypotension [Recovering/Resolving]
  - Dehydration [Recovering/Resolving]
  - Wound complication [Not Recovered/Not Resolved]
  - Drug ineffective for unapproved indication [Not Recovered/Not Resolved]

NARRATIVE: CASE EVENT DATE: 20161003
